FAERS Safety Report 8567074-8 (Version None)
Quarter: 2012Q3

REPORT INFORMATION
  Report Type: 
  Country: None (occurrence: None)
  Receive Date: 20120730
  Receipt Date: 20120730
  Transmission Date: 20120928
  Serious: Yes (Death, Other)
  Sender: FDA-Public Use
  Company Number: None

PATIENT
  Age: 14 Year
  Sex: Male
  Weight: 86.1834 kg

DRUGS (2)
  1. POLYETHYLENE GLYCOL [Suspect]
     Indication: INTESTINAL OBSTRUCTION
     Dosage: 17 GRAMS ONCE A DAY PO
     Route: 048
     Dates: start: 20120721, end: 20120723
  2. ONDANSETRON [Suspect]
     Indication: NAUSEA
     Dosage: 1 TAB EVERY 8 HRS PO
     Route: 048
     Dates: start: 20120721, end: 20120723

REACTIONS (10)
  - RENAL FAILURE [None]
  - MYOCARDIAL INFARCTION [None]
  - VISION BLURRED [None]
  - ILL-DEFINED DISORDER [None]
  - CARDIAC FAILURE [None]
  - HEART RATE INCREASED [None]
  - HEAD TITUBATION [None]
  - RESUSCITATION [None]
  - HEPATIC FAILURE [None]
  - BLOOD GLUCOSE DECREASED [None]
